FAERS Safety Report 8847733 (Version 3)
Quarter: 2012Q4

REPORT INFORMATION
  Report Type: 
  Country: DE (occurrence: DE)
  Receive Date: 20121018
  Receipt Date: 20121127
  Transmission Date: 20130627
  Serious: Yes (Hospitalization, Congenital Anomaly, Other)
  Sender: FDA-Public Use
  Company Number: DE-PFIZER INC-2012254077

PATIENT
  Sex: Female
  Weight: 1.69 kg

DRUGS (6)
  1. RAMIPRIL [Suspect]
     Indication: HYPERTENSION
     Dosage: UNK
     Route: 064
     Dates: start: 20090709, end: 20100126
  2. METFORMIN HCL [Suspect]
     Indication: TYPE 2 DIABETES MELLITUS
     Dosage: UNK
     Route: 064
     Dates: start: 20090709, end: 20100126
  3. METOPROLOL [Concomitant]
     Indication: HYPERTENSION
     Dosage: UNK
     Route: 064
     Dates: start: 20090709, end: 20100126
  4. DOPEGYT [Concomitant]
     Indication: HYPERTENSION
     Dosage: 250 mg, 3x/day
     Route: 064
     Dates: start: 20100126, end: 20100210
  5. NOVORAPID [Concomitant]
     Indication: TYPE 2 DIABETES MELLITUS
     Dosage: 52 IU, 1x/day
     Route: 064
     Dates: start: 20100126, end: 20100210
  6. INSULIN ISOPHANE, HUMAN BIOSYNTHETIC [Concomitant]
     Indication: TYPE 2 DIABETES MELLITUS
     Dosage: 30 IU, 1x/day
     Route: 064
     Dates: start: 20100126, end: 20100210

REACTIONS (12)
  - Maternal exposure timing unspecified [Unknown]
  - Congenital aortic valve stenosis [Recovered/Resolved with Sequelae]
  - Mitral valve incompetence [Not Recovered/Not Resolved]
  - Patent ductus arteriosus [Recovered/Resolved]
  - Atrial septal defect [Not Recovered/Not Resolved]
  - Bicuspid aortic valve [Not Recovered/Not Resolved]
  - Neonatal respiratory distress syndrome [Recovered/Resolved]
  - Premature baby [Unknown]
  - Foetal monitoring abnormal [Unknown]
  - Aortic valve incompetence [Unknown]
  - Cardiac failure [Unknown]
  - Pulmonary hypertension [Unknown]
